FAERS Safety Report 7985151-7 (Version None)
Quarter: 2011Q4

REPORT INFORMATION
  Report Type: 
  Country: None (occurrence: None)
  Receive Date: 20111216
  Receipt Date: 20111212
  Transmission Date: 20120403
  Serious: Yes (Death, Other)
  Sender: FDA-Public Use
  Company Number: PHHY2011CA108488

PATIENT
  Sex: Male

DRUGS (17)
  1. SEROQUEL [Concomitant]
  2. LISINOPRIL [Concomitant]
  3. SYMBICORT [Concomitant]
  4. EZETIMIBE [Concomitant]
  5. FUROSEMIDE [Concomitant]
  6. BETA BLOCKING AGENTS [Concomitant]
  7. FENOFIBRATE [Concomitant]
  8. ALISKIREN [Suspect]
     Indication: HYPERTENSION
     Dosage: 300 MG, UNK
     Route: 048
     Dates: start: 20100405
  9. NEXIUM [Concomitant]
  10. BISOPROLOL FUMARATE [Concomitant]
  11. NOVOFINE [Concomitant]
  12. DIURETICS [Concomitant]
  13. CYMBALTA [Concomitant]
  14. NOVORAPID [Concomitant]
  15. NOVOLIN 70/30 [Concomitant]
  16. HYDROCHLOROTHIAZIDE [Concomitant]
  17. JANUVIA [Concomitant]

REACTIONS (2)
  - CARBON MONOXIDE POISONING [None]
  - GLYCOSYLATED HAEMOGLOBIN INCREASED [None]
